FAERS Safety Report 7889675-2 (Version None)
Quarter: 2011Q4

REPORT INFORMATION
  Report Type: 
  Country: None (occurrence: None)
  Receive Date: 20111103
  Receipt Date: 20111028
  Transmission Date: 20120403
  Serious: Yes (Death)
  Sender: FDA-Public Use
  Company Number: JP-SANOFI-AVENTIS-F01200900458

PATIENT
  Age: 81 Year
  Sex: Male
  Weight: 55 kg

DRUGS (22)
  1. GASMOTIN [Concomitant]
     Route: 048
     Dates: start: 20090206, end: 20090213
  2. ATARAX [Concomitant]
     Route: 042
     Dates: start: 20090209, end: 20090209
  3. HEPARIN [Concomitant]
     Dosage: DOSE:12000 UNIT(S)
     Route: 042
     Dates: start: 20090208, end: 20090208
  4. MUCODYNE [Concomitant]
     Route: 048
     Dates: start: 20090206, end: 20090213
  5. CLOPIDOGREL BISULFATE [Suspect]
     Dosage: DOSE TEXT: MAINTENANCE DOSE
     Route: 048
     Dates: start: 20090207, end: 20090213
  6. ASPIRIN [Concomitant]
     Route: 048
     Dates: start: 20090205, end: 20090205
  7. SPIRIVA [Concomitant]
     Route: 055
     Dates: start: 20090206, end: 20090213
  8. SENNOSIDE A+B CALCIUM [Concomitant]
     Route: 048
     Dates: start: 20090206, end: 20090213
  9. HALOPERIDOL [Concomitant]
     Dosage: 0.5%
     Route: 042
     Dates: start: 20090208, end: 20090208
  10. PANTOSIN [Concomitant]
     Route: 048
     Dates: start: 20090206, end: 20090213
  11. CEFAZOLIN [Concomitant]
     Route: 042
     Dates: start: 20090209, end: 20090209
  12. CLOPIDOGREL BISULFATE [Suspect]
     Indication: ACUTE CORONARY SYNDROME
     Dosage: DOSE TEXT: STARTING DOSE
     Route: 048
     Dates: start: 20090206, end: 20090206
  13. ROBINUL [Concomitant]
     Route: 042
     Dates: start: 20090208, end: 20090208
  14. ASPIRIN [Concomitant]
     Route: 048
     Dates: start: 20090206, end: 20090213
  15. FAMOTIDINE [Concomitant]
     Route: 048
     Dates: start: 20090206, end: 20090213
  16. THEO-DUR [Concomitant]
     Dosage: CONTINUOUS ADMINISTRATION
     Route: 048
     Dates: start: 20090206, end: 20090213
  17. ASPIRIN [Concomitant]
     Indication: ANTIPLATELET THERAPY
     Dates: start: 20090205
  18. CLOPIDOGREL BISULFATE [Suspect]
     Dosage: DOSE TEXT: MAINTENANCE DOSE
     Route: 048
     Dates: start: 20090207, end: 20090213
  19. SEREVENT [Concomitant]
     Route: 055
     Dates: start: 20090206, end: 20090213
  20. DEPAS [Concomitant]
     Route: 048
     Dates: start: 20090206, end: 20090213
  21. SIGMART [Concomitant]
     Route: 042
     Dates: start: 20090208, end: 20090208
  22. CLOPIDOGREL BISULFATE [Suspect]
     Dosage: DOSE TEXT: STARTING DOSE
     Route: 048
     Dates: start: 20090206, end: 20090206

REACTIONS (3)
  - DRUG INEFFECTIVE [None]
  - THROMBOSIS IN DEVICE [None]
  - CARDIAC DEATH [None]
